FAERS Safety Report 8873794 (Version 2)
Quarter: 2013Q3

REPORT INFORMATION
  Report Type: Spontaneous
  Country: US (occurrence: US)
  Receive Date: 20121026
  Receipt Date: 20130930
  Transmission Date: 20140515
  Serious: No
  Sender: FDA-Public Use
  Company Number: US-AMGEN-USASP2012045437

PATIENT
  Age: 78 Year
  Sex: Female

DRUGS (1)
  1. ENBREL [Suspect]
     Indication: PSORIASIS
     Dosage: 50 MG, QWK
     Dates: start: 20101207, end: 20121119

REACTIONS (5)
  - Cataract [Not Recovered/Not Resolved]
  - Diarrhoea [Unknown]
  - Tooth extraction [Recovered/Resolved]
  - Eye infection [Not Recovered/Not Resolved]
  - Psoriasis [Not Recovered/Not Resolved]
